FAERS Safety Report 14707123 (Version 1)
Quarter: 2018Q2

REPORT INFORMATION
  Report Type: Report from Study
  Country: None (occurrence: US)
  Receive Date: 20180403
  Receipt Date: 20180403
  Transmission Date: 20180711
  Serious: Yes (Hospitalization)
  Sender: FDA-Public Use
  Company Number: US-ABBVIE-17K-163-2045260-00

PATIENT
  Sex: Female

DRUGS (3)
  1. LEFLUNOMIDE. [Suspect]
     Active Substance: LEFLUNOMIDE
     Indication: PRODUCT USED FOR UNKNOWN INDICATION
     Route: 065
  2. METHOTREXATE. [Suspect]
     Active Substance: METHOTREXATE
     Indication: PRODUCT USED FOR UNKNOWN INDICATION
     Route: 065
  3. HUMIRA [Suspect]
     Active Substance: ADALIMUMAB
     Indication: RHEUMATOID ARTHRITIS
     Route: 058
     Dates: end: 2017

REACTIONS (12)
  - Heart rate increased [Recovered/Resolved]
  - Rheumatoid arthritis [Not Recovered/Not Resolved]
  - Chills [Unknown]
  - Blood glucose increased [Recovered/Resolved]
  - Renal function test abnormal [Recovered/Resolved]
  - Bronchitis [Unknown]
  - Therapeutic response unexpected [Unknown]
  - Alopecia [Recovered/Resolved]
  - Pyrexia [Unknown]
  - Rheumatoid arthritis [Recovered/Resolved]
  - Pre-existing condition improved [Recovering/Resolving]
  - Blood creatine increased [Recovered/Resolved]

NARRATIVE: CASE EVENT DATE: 2017
